FAERS Safety Report 18889155 (Version 1)
Quarter: 2021Q1

REPORT INFORMATION
  Report Type: Spontaneous
  Country: SE (occurrence: SE)
  Receive Date: 20210212
  Receipt Date: 20210212
  Transmission Date: 20210420
  Serious: Yes (Other)
  Sender: FDA-Public Use
  Company Number: SE-REDHILL BIOPHARMA-2021RDH00012

PATIENT

DRUGS (1)
  1. MOVENTIG [Suspect]
     Active Substance: NALOXEGOL OXALATE
     Indication: CONSTIPATION
     Route: 048

REACTIONS (3)
  - Off label use [Unknown]
  - Drug ineffective [Unknown]
  - Ileus paralytic [Unknown]
